FAERS Safety Report 8389118-9 (Version None)
Quarter: 2012Q2

REPORT INFORMATION
  Report Type: 
  Country: None (occurrence: None)
  Receive Date: 20120528
  Receipt Date: 20120522
  Transmission Date: 20120825
  Serious: Yes (Other)
  Sender: FDA-Public Use
  Company Number: PHEH2012US010597

PATIENT
  Sex: Female

DRUGS (4)
  1. COREG [Concomitant]
     Dosage: UNK UKN, UNK
  2. DIOVAN [Suspect]
     Dosage: UNK UKN, UNK
  3. LISINOPRIL [Concomitant]
     Dosage: UNK UKN, UNK
  4. VANCOMYCIN [Concomitant]
     Dosage: UNK UKN, UNK

REACTIONS (1)
  - CLOSTRIDIUM DIFFICILE COLITIS [None]
